FAERS Safety Report 9745271 (Version 4)
Quarter: 2014Q1

REPORT INFORMATION
  Report Type: Report from Study
  Country: JP (occurrence: JP)
  Receive Date: 20131211
  Receipt Date: 20140214
  Transmission Date: 20141002
  Serious: Yes (Hospitalization, Other)
  Sender: FDA-Public Use
  Company Number: JP-JNJFOC-20130214556

PATIENT
  Age: 63 Year
  Sex: Male
  Weight: 73 kg

DRUGS (31)
  1. STELARA [Suspect]
     Indication: PSORIATIC ARTHROPATHY
     Route: 058
     Dates: start: 20130110, end: 20130110
  2. STELARA [Suspect]
     Indication: PSORIATIC ARTHROPATHY
     Route: 058
     Dates: start: 20130328, end: 20130328
  3. STELARA [Suspect]
     Indication: PSORIATIC ARTHROPATHY
     Route: 058
     Dates: start: 20130704, end: 20130704
  4. STELARA [Suspect]
     Indication: PSORIATIC ARTHROPATHY
     Route: 058
     Dates: start: 20120726, end: 20120726
  5. STELARA [Suspect]
     Indication: PSORIATIC ARTHROPATHY
     Route: 058
     Dates: start: 20120629, end: 20120629
  6. STELARA [Suspect]
     Indication: PSORIATIC ARTHROPATHY
     Route: 058
     Dates: start: 20121018, end: 20121018
  7. RHYTHMY [Concomitant]
     Indication: INSOMNIA
     Route: 048
     Dates: start: 20121101
  8. BAYASPIRIN [Concomitant]
     Indication: GASTRIC ULCER
     Route: 048
  9. BAYASPIRIN [Concomitant]
     Indication: MYOCARDIAL INFARCTION
     Route: 048
  10. BLOPRESS [Concomitant]
     Indication: HYPERTENSION
     Route: 048
  11. CELECOX [Concomitant]
     Indication: PSORIATIC ARTHROPATHY
     Route: 048
     Dates: end: 20121109
  12. SELBEX [Concomitant]
     Indication: PROPHYLAXIS
     Route: 048
     Dates: end: 20121109
  13. ALLELOCK [Concomitant]
     Indication: PSORIATIC ARTHROPATHY
     Route: 048
     Dates: end: 20121109
  14. OMEPRAZOLE [Concomitant]
     Indication: GASTRIC ULCER
     Route: 048
     Dates: end: 20121017
  15. ANTEBATE [Concomitant]
     Indication: PSORIATIC ARTHROPATHY
     Route: 061
  16. ANTEBATE [Concomitant]
     Indication: PSORIATIC ARTHROPATHY
     Route: 061
  17. MYSLEE [Concomitant]
     Indication: INSOMNIA
     Route: 048
     Dates: end: 20120701
  18. ROHYPNOL [Concomitant]
     Indication: INSOMNIA
     Dosage: AS NEEDED (PRN)
     Route: 048
     Dates: end: 20120701
  19. NEORAL [Concomitant]
     Indication: PSORIATIC ARTHROPATHY
     Route: 048
     Dates: start: 20120115, end: 20120131
  20. NEORAL [Concomitant]
     Indication: PSORIATIC ARTHROPATHY
     Route: 048
     Dates: start: 20120201, end: 20120509
  21. NEORAL [Concomitant]
     Indication: PSORIATIC ARTHROPATHY
     Route: 048
     Dates: start: 20120510, end: 20120516
  22. NEORAL [Concomitant]
     Indication: PSORIATIC ARTHROPATHY
     Route: 048
     Dates: end: 20120720
  23. OXAROL [Concomitant]
     Indication: PSORIATIC ARTHROPATHY
     Route: 061
  24. GASTER [Concomitant]
     Indication: GASTRIC ULCER
     Route: 048
     Dates: start: 20121109
  25. GASTER [Concomitant]
     Indication: GASTRIC ULCER
     Route: 048
     Dates: start: 20121017, end: 20121019
  26. PREDONINE [Concomitant]
     Indication: PROPHYLAXIS
     Route: 048
     Dates: start: 20121017, end: 20121019
  27. PREDONINE [Concomitant]
     Indication: PROPHYLAXIS
     Route: 048
     Dates: start: 20130110, end: 20130329
  28. PREDONINE [Concomitant]
     Indication: PROPHYLAXIS
     Route: 048
     Dates: start: 20130703
  29. PLAVIX [Concomitant]
     Indication: PROPHYLAXIS
     Route: 048
     Dates: start: 20121109
  30. PLAVIX [Concomitant]
     Indication: ACUTE CORONARY SYNDROME
     Route: 048
     Dates: start: 20121109
  31. CEFZON [Concomitant]
     Indication: INFECTED DERMAL CYST
     Route: 048
     Dates: start: 20130110, end: 20130116

REACTIONS (1)
  - Acute coronary syndrome [Recovered/Resolved]
